FAERS Safety Report 5083847-0 (Version None)
Quarter: 2006Q3

REPORT INFORMATION
  Report Type: 
  Country: None (occurrence: None)
  Receive Date: 20060818
  Receipt Date: 20060620
  Transmission Date: 20061208
  Serious: Yes (Other)
  Sender: FDA-Public Use
  Company Number: FR-AMGEN-UK183708

PATIENT
  Sex: Female
  Weight: 70 kg

DRUGS (5)
  1. MIMPARA [Suspect]
     Indication: HYPERPARATHYROIDISM SECONDARY
     Route: 048
     Dates: start: 20060413, end: 20060610
  2. TAHOR [Suspect]
     Route: 065
     Dates: start: 20041204, end: 20060616
  3. KAYEXALATE [Concomitant]
     Route: 065
     Dates: start: 20041128, end: 20060616
  4. IMOVANE [Concomitant]
     Route: 065
  5. OMEPRAZOLE [Concomitant]
     Dates: start: 20060606

REACTIONS (13)
  - ABDOMINAL PAIN [None]
  - ALANINE AMINOTRANSFERASE ABNORMAL [None]
  - ASPARTATE AMINOTRANSFERASE ABNORMAL [None]
  - CONVERSION DISORDER [None]
  - DRUG ADMINISTRATION ERROR [None]
  - DRUG INTERACTION [None]
  - GAMMA-GLUTAMYLTRANSFERASE ABNORMAL [None]
  - GENERAL PHYSICAL HEALTH DETERIORATION [None]
  - HEPATITIS [None]
  - LIPASE ABNORMAL [None]
  - NAUSEA [None]
  - TREATMENT NONCOMPLIANCE [None]
  - VOMITING [None]
